FAERS Safety Report 8369129-X (Version None)
Quarter: 2012Q2

REPORT INFORMATION
  Report Type: 
  Country: None (occurrence: None)
  Receive Date: 20120516
  Receipt Date: 20120516
  Transmission Date: 20120825
  Serious: Yes (Other)
  Sender: FDA-Public Use
  Company Number: None

PATIENT
  Sex: Female
  Weight: 72.7 kg

DRUGS (1)
  1. ESCITALOPRAM [Suspect]
     Indication: PANIC DISORDER
     Dosage: 20 MG DAILY 047 (ORAL)
     Route: 048
     Dates: start: 20120504, end: 20120507

REACTIONS (5)
  - WITHDRAWAL SYNDROME [None]
  - PRODUCT SUBSTITUTION ISSUE [None]
  - DIZZINESS [None]
  - NAUSEA [None]
  - AKATHISIA [None]
